FAERS Safety Report 5866154-5 (Version None)
Quarter: 2008Q3

REPORT INFORMATION
  Report Type: 
  Country: None (occurrence: None)
  Receive Date: 20080829
  Receipt Date: 20080825
  Transmission Date: 20090109
  Serious: Yes (Hospitalization, Other)
  Sender: FDA-Public Use
  Company Number: US-MERCK-0803USA02328

PATIENT
  Age: 63 Year
  Sex: Female

DRUGS (2)
  1. FOSAMAX [Suspect]
     Indication: OSTEOPOROSIS
     Route: 048
     Dates: end: 20060401
  2. FOSAMAX [Suspect]
     Route: 048
     Dates: start: 20000501

REACTIONS (12)
  - ARTHRITIS [None]
  - BACK DISORDER [None]
  - BREAST CANCER [None]
  - BREAST NEOPLASM [None]
  - CORNEAL EROSION [None]
  - DENTAL FISTULA [None]
  - GASTROOESOPHAGEAL REFLUX DISEASE [None]
  - INCONTINENCE [None]
  - INTESTINAL FUNCTIONAL DISORDER [None]
  - OCULAR HYPERTENSION [None]
  - OSTEONECROSIS [None]
  - PARATHYROID DISORDER [None]
